FAERS Safety Report 4986963-4 (Version None)
Quarter: 2006Q2

REPORT INFORMATION
  Report Type: 
  Country: None (occurrence: None)
  Receive Date: 20060428
  Receipt Date: 20060428
  Transmission Date: 20061013
  Serious: No
  Sender: FDA-Public Use
  Company Number: None

PATIENT
  Age: 60 Year
  Sex: Male
  Weight: 95.2554 kg

DRUGS (2)
  1. EFFEXOR [Suspect]
     Indication: DEPRESSION POSTOPERATIVE
     Dosage: 1     1 PER DAY
     Dates: start: 20030226, end: 20030303
  2. EFFEXOR XP [Concomitant]

REACTIONS (2)
  - ABNORMAL BEHAVIOUR [None]
  - AGGRESSION [None]
